FAERS Safety Report 9139269 (Version 1)
Quarter: 2013Q1

REPORT INFORMATION
  Report Type: Spontaneous
  Country: CH (occurrence: CH)
  Receive Date: 20130305
  Receipt Date: 20130305
  Transmission Date: 20140127
  Serious: Yes (Hospitalization, Other)
  Sender: FDA-Public Use
  Company Number: PHHY2013CH020123

PATIENT
  Age: 40 Year
  Sex: Female

DRUGS (3)
  1. TEGRETOL CR [Suspect]
     Indication: EPILEPSY
     Dosage: 1000 MG, (400 MG IN MORNING AND 600 MG IN EVENING)
  2. TEGRETOL [Suspect]
     Dosage: 2 DF, BID
     Dates: start: 20130205, end: 20130206
  3. ANTIHISTAMINICS [Suspect]

REACTIONS (3)
  - Haemangioma [Unknown]
  - Type I hypersensitivity [Recovered/Resolved]
  - Rash maculo-papular [Recovered/Resolved]
